FAERS Safety Report 10700354 (Version 1)
Quarter: 2015Q1

REPORT INFORMATION
  Report Type: Spontaneous
  Country: FI (occurrence: FI)
  Receive Date: 20150109
  Receipt Date: 20150109
  Transmission Date: 20150721
  Serious: Yes (Death, Hospitalization)
  Sender: FDA-Public Use
  Company Number: FI-B.I. PHARMACEUTICALS,INC./RIDGEFIELD-2015-BI-01142SF

PATIENT
  Age: 71 Year
  Sex: Male

DRUGS (5)
  1. SIMVASTATIN. [Concomitant]
     Active Substance: SIMVASTATIN
     Indication: HYPERCHOLESTEROLAEMIA
     Dosage: 40 MG
     Route: 065
  2. PRADAXA [Suspect]
     Active Substance: DABIGATRAN ETEXILATE MESYLATE
     Indication: ANTICOAGULANT THERAPY
     Dosage: 300 MG
     Route: 048
     Dates: end: 20141222
  3. ENALAPRIL [Concomitant]
     Active Substance: ENALAPRIL
     Indication: HYPERTENSION
     Dosage: 10 MG
     Route: 065
  4. ORLOC [Concomitant]
     Active Substance: BISOPROLOL FUMARATE
     Indication: HYPERTENSION
     Dosage: 10 MG
     Route: 065
     Dates: start: 200808
  5. PRADAXA [Suspect]
     Active Substance: DABIGATRAN ETEXILATE MESYLATE
     Indication: ATRIAL FIBRILLATION

REACTIONS (12)
  - Cardiovascular disorder [Fatal]
  - Procedural haemorrhage [Fatal]
  - Gastric disorder [Fatal]
  - Dyspnoea [Fatal]
  - Large intestinal obstruction [Fatal]
  - Depressed level of consciousness [Fatal]
  - Large intestine perforation [Fatal]
  - Abdominal distension [Fatal]
  - Abdominal pain [Fatal]
  - Peritonitis [Fatal]
  - Urine output decreased [Fatal]
  - Haematemesis [Fatal]

NARRATIVE: CASE EVENT DATE: 20141218
